FAERS Safety Report 18714433 (Version 10)
Quarter: 2021Q2

REPORT INFORMATION
  Report Type: Other
  Country: JP (occurrence: JP)
  Receive Date: 20210108
  Receipt Date: 20210604
  Transmission Date: 20210717
  Serious: Yes (Hospitalization, Other)
  Sender: FDA-Public Use
  Company Number: JP-ROCHE-2743344

PATIENT
  Age: 57 Year
  Sex: Female
  Weight: 41 kg

DRUGS (8)
  1. SALAZOSULFAPYRIDINE [Suspect]
     Active Substance: SULFASALAZINE
     Indication: NEUROMYELITIS OPTICA SPECTRUM DISORDER
     Dosage: DOSAGE IS UNCERTAIN.
     Route: 065
  2. PREDNISOLONE. [Suspect]
     Active Substance: PREDNISOLONE
     Indication: NEUROMYELITIS OPTICA SPECTRUM DISORDER
     Dosage: DOSAGE IS UNCERTAIN.
     Route: 048
     Dates: start: 20201026
  3. SATRALIZUMAB. [Suspect]
     Active Substance: SATRALIZUMAB
     Indication: NEUROMYELITIS OPTICA SPECTRUM DISORDER
     Dosage: HYPODERMIC
     Route: 058
     Dates: start: 20201026
  4. SATRALIZUMAB. [Suspect]
     Active Substance: SATRALIZUMAB
     Dosage: HYPODERMIC
     Route: 058
     Dates: start: 20201228
  5. SATRALIZUMAB. [Suspect]
     Active Substance: SATRALIZUMAB
     Dosage: HYPODERMIC
     Route: 058
     Dates: start: 20201130
  6. SATRALIZUMAB. [Suspect]
     Active Substance: SATRALIZUMAB
     Dosage: HYPODERMIC
     Route: 058
     Dates: start: 20210426
  7. PREDNISOLONE. [Suspect]
     Active Substance: PREDNISOLONE
     Dosage: DOSAGE IS UNCERTAIN.
     Route: 048
  8. PREDNISOLONE. [Suspect]
     Active Substance: PREDNISOLONE
     Dosage: DOSAGE IS UNCERTAIN.
     Route: 048

REACTIONS (3)
  - Pneumonia aspiration [Recovering/Resolving]
  - Pericardial effusion [Unknown]
  - Urinary tract infection [Recovered/Resolved]

NARRATIVE: CASE EVENT DATE: 20201202
